FAERS Safety Report 5451819-X (Version None)
Quarter: 2007Q3

REPORT INFORMATION
  Report Type: 
  Country: None (occurrence: None)
  Receive Date: 20070806
  Receipt Date: 20070212
  Transmission Date: 20080115
  Serious: Yes (Other)
  Sender: FDA-Public Use
  Company Number: 34372

PATIENT
  Age: 28 Year
  Sex: Male
  Weight: 90.7194 kg

DRUGS (7)
  1. MIDAZOLAM HCL [Suspect]
     Indication: SEDATION
     Dosage: 2MG 1-3MIN/IV (TOTAL 17MG)
     Route: 042
     Dates: start: 20070124
  2. MIDAZOLAM HCL [Suspect]
     Indication: SEDATION
  3. SENEQUAN [Concomitant]
  4. FENTANYL [Concomitant]
  5. VALIUM [Concomitant]
  6. SMOKER [Concomitant]
  7. ALCOHOL [Concomitant]

REACTIONS (1)
  - DRUG INEFFECTIVE [None]
